FAERS Safety Report 17266103 (Version 2)
Quarter: 2020Q1

REPORT INFORMATION
  Report Type: Report from Study
  Country: DE (occurrence: DE)
  Receive Date: 20200114
  Receipt Date: 20200122
  Transmission Date: 20200409
  Serious: Yes (Hospitalization)
  Sender: FDA-Public Use
  Company Number: DE-ROCHE-2520745

PATIENT
  Sex: Male
  Weight: 126 kg

DRUGS (8)
  1. ATEZOLIZUMAB. [Suspect]
     Active Substance: ATEZOLIZUMAB
     Indication: NON-SMALL CELL LUNG CANCER
     Route: 042
     Dates: start: 20191024
  2. COLECALCIFEROL [Concomitant]
     Active Substance: CHOLECALCIFEROL
     Route: 048
     Dates: start: 201808
  3. HYDROMORPHONE [Concomitant]
     Active Substance: HYDROMORPHONE
     Route: 048
     Dates: start: 201808
  4. PANTOPRAZOLE [Concomitant]
     Active Substance: PANTOPRAZOLE
     Indication: PROPHYLAXIS
     Route: 048
     Dates: start: 201808
  5. SODIUM SELENITE [Concomitant]
     Active Substance: SODIUM SELENITE
     Route: 048
     Dates: start: 201808
  6. CARBAMAZEPINE. [Concomitant]
     Active Substance: CARBAMAZEPINE
     Indication: INTERVERTEBRAL DISC PROTRUSION
     Route: 048
     Dates: start: 201808
  7. ZOPICLON [Concomitant]
     Active Substance: ZOPICLONE
     Route: 048
     Dates: start: 20191115
  8. METAMIZOL [Concomitant]
     Active Substance: METAMIZOLE SODIUM
     Indication: BACK PAIN
     Route: 048
     Dates: start: 20191023

REACTIONS (1)
  - Necrosis [Recovered/Resolved]

NARRATIVE: CASE EVENT DATE: 20200107
